FAERS Safety Report 7607791-7 (Version None)
Quarter: 2011Q3

REPORT INFORMATION
  Report Type: 
  Country: None (occurrence: None)
  Receive Date: 20110714
  Receipt Date: 20110707
  Transmission Date: 20111222
  Serious: Yes (Other)
  Sender: FDA-Public Use
  Company Number: GB-BRISTOL-MYERS SQUIBB COMPANY-15780976

PATIENT
  Age: 38 Year
  Sex: Male

DRUGS (1)
  1. ABILIFY [Suspect]
     Indication: SCHIZOPHRENIA
     Route: 048
     Dates: start: 20110328, end: 20110503

REACTIONS (4)
  - SUICIDAL IDEATION [None]
  - HOMICIDAL IDEATION [None]
  - PSYCHOTIC DISORDER [None]
  - PARANOIA [None]
